FAERS Safety Report 8758917 (Version 1)
Quarter: 2012Q4

REPORT INFORMATION
  Report Type: 
  Country: JP (occurrence: JP)
  Receive Date: 20120829
  Receipt Date: 20120829
  Transmission Date: 20130627
  Serious: Yes (Other)
  Sender: FDA-Public Use
  Company Number: JP-JNJFOC-20120812819

PATIENT

DRUGS (1)
  1. ITRIZOLE [Suspect]
     Indication: PRODUCT USED FOR UNKNOWN INDICATION
     Dosage: cycle 1 of pulse therapy completed and cycle 2 was scheduled to be initiated on 03-SEP-2012
     Route: 048

REACTIONS (1)
  - Herpes zoster [Unknown]
